FAERS Safety Report 10454616 (Version 2)
Quarter: 2014Q3

REPORT INFORMATION
  Report Type: Spontaneous
  Country: US (occurrence: US)
  Receive Date: 20140915
  Receipt Date: 20140915
  Transmission Date: 20150326
  Serious: No
  Sender: FDA-Public Use
  Company Number: US-BRISTOL-MYERS SQUIBB COMPANY-19231422

PATIENT
  Age: 63 Year
  Sex: Female

DRUGS (7)
  1. LASIX [Concomitant]
     Active Substance: FUROSEMIDE
  2. ONGLYZA [Suspect]
     Active Substance: SAXAGLIPTIN HYDROCHLORIDE
     Indication: DIABETES MELLITUS
     Route: 048
     Dates: start: 20130220, end: 20130228
  3. PRAVASTATIN SODIUM. [Concomitant]
     Active Substance: PRAVASTATIN SODIUM
  4. LISINOPRIL. [Concomitant]
     Active Substance: LISINOPRIL
  5. INSULIN [Concomitant]
     Active Substance: INSULIN NOS
     Dosage: 75 UNITS
  6. GLIPIZIDE. [Concomitant]
     Active Substance: GLIPIZIDE
  7. TRIAMTERENE + HCTZ [Concomitant]

REACTIONS (2)
  - Medication error [Unknown]
  - Crying [Unknown]

NARRATIVE: CASE EVENT DATE: 20130220
